FAERS Safety Report 7122848-5 (Version None)
Quarter: 2010Q4

REPORT INFORMATION
  Report Type: 
  Country: None (occurrence: None)
  Receive Date: 20101124
  Receipt Date: 20101117
  Transmission Date: 20110411
  Serious: Yes (Hospitalization)
  Sender: FDA-Public Use
  Company Number: JP-ABBOTT-10P-087-0686792-00

PATIENT
  Age: 1 Day
  Sex: Female

DRUGS (1)
  1. SEVOFLURANE [Suspect]
     Indication: DRUG EXPOSURE DURING PREGNANCY

REACTIONS (2)
  - DRUG EXPOSURE DURING PREGNANCY [None]
  - RHABDOMYOLYSIS [None]
